FAERS Safety Report 5626973-7 (Version None)
Quarter: 2008Q1

REPORT INFORMATION
  Report Type: 
  Country: None (occurrence: None)
  Receive Date: 20080212
  Receipt Date: 20080129
  Transmission Date: 20080703
  Serious: Yes (Other)
  Sender: FDA-Public Use
  Company Number: 2008002988

PATIENT
  Sex: Female

DRUGS (2)
  1. ADVANCED TARTER CONTROL LISTERINE (MENTHOL, METHYL SALICYLATE, EUCALYP [Suspect]
     Dosage: ORAL
     Route: 048
  2. COOL MINT LISTERINE ACTIVES (NO ACTIVE INGREDIENT) [Suspect]
     Dosage: ORAL
     Route: 048

REACTIONS (1)
  - DRUG DEPENDENCE [None]
